FAERS Safety Report 11716486 (Version 2)
Quarter: 2015Q4

REPORT INFORMATION
  Report Type: Spontaneous
  Country: US (occurrence: US)
  Receive Date: 20151104
  Receipt Date: 20151110
  Transmission Date: 20160304
  Serious: No
  Sender: FDA-Public Use
  Company Number: US-ELI_LILLY_AND_COMPANY-US201107006381

PATIENT
  Age: 76 Year
  Sex: Male

DRUGS (9)
  1. FORTEO [Suspect]
     Active Substance: TERIPARATIDE
     Dosage: 20 UG, QD
     Route: 058
  2. FORTEO [Suspect]
     Active Substance: TERIPARATIDE
     Dosage: 20 UG, QD
     Route: 058
     Dates: start: 20120411, end: 20120423
  3. PLAQUENIL [Concomitant]
     Active Substance: HYDROXYCHLOROQUINE SULFATE
     Indication: RHEUMATOID ARTHRITIS
  4. FORTEO [Suspect]
     Active Substance: TERIPARATIDE
     Indication: OSTEOPOROSIS
     Dosage: 20 UG, QD
     Route: 058
  5. FORTEO [Suspect]
     Active Substance: TERIPARATIDE
     Dosage: 20 UG, QD
     Route: 058
  6. METHADONE [Concomitant]
     Active Substance: METHADONE HYDROCHLORIDE
  7. PREDNISONE. [Concomitant]
     Active Substance: PREDNISONE
     Indication: RHEUMATOID ARTHRITIS
     Dosage: 5 MG, QD
  8. MORPHINE [Concomitant]
     Active Substance: MORPHINE
  9. FORTEO [Suspect]
     Active Substance: TERIPARATIDE
     Dosage: 20 UG, QD
     Route: 058

REACTIONS (16)
  - Injection site urticaria [Unknown]
  - Pain [Not Recovered/Not Resolved]
  - Nausea [Unknown]
  - Asthenia [Not Recovered/Not Resolved]
  - Tooth disorder [Unknown]
  - Device related infection [Unknown]
  - Muscular weakness [Not Recovered/Not Resolved]
  - Malaise [Unknown]
  - Injection site bruising [Not Recovered/Not Resolved]
  - Reading disorder [Unknown]
  - Tooth fracture [Not Recovered/Not Resolved]
  - Thinking abnormal [Unknown]
  - Medication error [Unknown]
  - Haemoglobin decreased [Unknown]
  - Hypersomnia [Unknown]
  - Injection site erythema [Not Recovered/Not Resolved]

NARRATIVE: CASE EVENT DATE: 20120125
